FAERS Safety Report 5266015-9 (Version None)
Quarter: 2007Q1

REPORT INFORMATION
  Report Type: 
  Country: None (occurrence: None)
  Receive Date: 20070313
  Receipt Date: 20070313
  Transmission Date: 20070707
  Serious: Yes (Hospitalization, Other)
  Sender: FDA-Public Use
  Company Number: None

PATIENT
  Age: 64 Year
  Sex: Male
  Weight: 88 kg

DRUGS (2)
  1. LINEZOLID [Suspect]
     Indication: BACTERAEMIA
     Dosage: 600MG BID IV
     Route: 042
     Dates: start: 20070104, end: 20070303
  2. LINEZOLID [Suspect]
     Indication: VENTRICULAR ASSIST DEVICE INSERTION
     Dosage: 600MG BID IV
     Route: 042
     Dates: start: 20070104, end: 20070303

REACTIONS (1)
  - PANCYTOPENIA [None]
